FAERS Safety Report 5585191-1 (Version None)
Quarter: 2008Q1

REPORT INFORMATION
  Report Type: 
  Country: None (occurrence: None)
  Receive Date: 20080104
  Receipt Date: 20080104
  Transmission Date: 20080703
  Serious: Yes (Other)
  Sender: FDA-Public Use
  Company Number: None

PATIENT
  Sex: Female
  Weight: 70.3075 kg

DRUGS (5)
  1. VICKS DAYQUIL -ACETAMINOPHEN, DEXTROMETHORPHAN, PHENYLEPHRINE 5MG -325 [Suspect]
     Indication: NASOPHARYNGITIS
     Dosage: 5MG -1 TABLET- 3 DOSES -Q4H- PO
     Route: 048
     Dates: start: 20071111, end: 20071111
  2. LOVASTATIN [Concomitant]
  3. ASPIRIN [Concomitant]
  4. CALCIUM GLUCONATE [Concomitant]
  5. VITAMIN D [Concomitant]

REACTIONS (2)
  - FEELING ABNORMAL [None]
  - SUICIDAL IDEATION [None]
